FAERS Safety Report 16641599 (Version 2)
Quarter: 2019Q3

REPORT INFORMATION
  Report Type: Report from Study
  Country: US (occurrence: US)
  Receive Date: 20190729
  Receipt Date: 20190730
  Transmission Date: 20191004
  Serious: Yes (Other)
  Sender: FDA-Public Use
  Company Number: US-ROCHE-1921442

PATIENT

DRUGS (7)
  1. ALTEPLASE. [Suspect]
     Active Substance: ALTEPLASE
     Dosage: COMBINATION THERAPY: 1.0 MG/KG (MAXIMUM 90 MG) OVER 1 HOUR WITH 10% GIVEN AS A BOLUS AND SK 1.0 MILL
     Route: 040
  2. HEPARIN [Suspect]
     Active Substance: HEPARIN SODIUM
     Indication: ACUTE MYOCARDIAL INFARCTION
     Dosage: 5000 U THEN 1000 U/H FOR AT LEAST 48 HOURS
     Route: 040
  3. STREPTOKINASE [Suspect]
     Active Substance: STREPTOKINASE
     Indication: ACUTE MYOCARDIAL INFARCTION
     Dosage: 1.5 MILLION U OVER 1 HOUR
     Route: 040
  4. HEPARIN [Suspect]
     Active Substance: HEPARIN SODIUM
     Dosage: 12500 UNIT
     Route: 058
  5. ALTEPLASE. [Suspect]
     Active Substance: ALTEPLASE
     Indication: ACUTE MYOCARDIAL INFARCTION
     Dosage: THEN 0.75 MG/KG (MAXIMUM 50 MG) OVER 30 MINUTES AND 0.5 MG/KG (MAXIMUM 35 MG) OVER 1 HOUR (ACCELERAT
     Route: 040
  6. STREPTOKINASE [Suspect]
     Active Substance: STREPTOKINASE
     Dosage: 1.0 MILLION U OVER 1 HOUR
     Route: 040
  7. ASPIRIN [ACETYLSALICYLIC ACID] [Concomitant]
     Active Substance: ASPIRIN
     Dosage: 160 TO 325 MG DAILY
     Route: 048

REACTIONS (9)
  - Subarachnoid haemorrhage [Unknown]
  - Cerebrovascular accident [Unknown]
  - Ischaemia [Unknown]
  - Haemorrhagic transformation stroke [Unknown]
  - Intraventricular haemorrhage [Unknown]
  - Subdural haemorrhage [Unknown]
  - Infarction [Unknown]
  - Cerebral haemorrhage [Unknown]
  - Haemorrhagic stroke [Unknown]
